FAERS Safety Report 10677496 (Version 1)
Quarter: 2014Q4

REPORT INFORMATION
  Report Type: Spontaneous
  Country: US (occurrence: US)
  Receive Date: 20141228
  Receipt Date: 20141228
  Transmission Date: 20150529
  Serious: No
  Sender: FDA-Public Use
  Company Number: US-ASTRAZENECA-2014SE93963

PATIENT
  Age: 67 Year
  Sex: Female

DRUGS (1)
  1. SYMBICORT [Suspect]
     Active Substance: BUDESONIDE\FORMOTEROL FUMARATE DIHYDRATE
     Indication: CHRONIC OBSTRUCTIVE PULMONARY DISEASE
     Dosage: 160/4.5MCG 2 PUFFS DAILY
     Route: 055

REACTIONS (3)
  - Pharyngeal oedema [Unknown]
  - Off label use [Unknown]
  - Throat irritation [Unknown]

NARRATIVE: CASE EVENT DATE: 2014
